FAERS Safety Report 4329548-5 (Version None)
Quarter: 2004Q2

REPORT INFORMATION
  Report Type: 
  Country: None (occurrence: None)
  Receive Date: 20040401
  Receipt Date: 20040330
  Transmission Date: 20050107
  Serious: Yes (Hospitalization)
  Sender: FDA-Public Use
  Company Number: IT-BRISTOL-MYERS SQUIBB COMPANY-12545596

PATIENT
  Age: 61 Year
  Sex: Female

DRUGS (5)
  1. CETUXIMAB [Suspect]
     Indication: COLORECTAL CANCER METASTATIC
     Dosage: THERAPY INITIATED 29-JAN-2004-PT RECEIVED 3 DOSES
     Route: 042
     Dates: start: 20040325, end: 20040325
  2. IRINOTECAN [Suspect]
     Indication: COLORECTAL CANCER METASTATIC
     Dosage: THERAPY INITIATED 29-JAN-2004-PT RECEIVED 3 DOSES
     Route: 042
     Dates: start: 20040325, end: 20040325
  3. CIPROXIN [Concomitant]
     Dates: start: 20040326, end: 20040327
  4. ROCEPHIN [Concomitant]
     Dates: start: 20040327
  5. KLACID [Concomitant]
     Dates: start: 20040327

REACTIONS (4)
  - ANAEMIA [None]
  - ASTHENIA [None]
  - PYREXIA [None]
  - SYNCOPE [None]
